FAERS Safety Report 10428139 (Version 1)
Quarter: 2014Q3

REPORT INFORMATION
  Report Type: Spontaneous
  Country: FR (occurrence: FR)
  Receive Date: 20140903
  Receipt Date: 20140903
  Transmission Date: 20150326
  Serious: Yes (Other)
  Sender: FDA-Public Use
  Company Number: CHPA2014FR011352

PATIENT
  Age: 36 Year
  Sex: Female

DRUGS (1)
  1. SCOPODERM TTS [Suspect]
     Active Substance: SCOPOLAMINE
     Indication: MOTION SICKNESS
     Dosage: 1 DF, ONCE/SINGLE
     Route: 062
     Dates: start: 20140804, end: 20140805

REACTIONS (2)
  - Urinary retention [Recovered/Resolved]
  - Mucosal dryness [Unknown]

NARRATIVE: CASE EVENT DATE: 20140805
